FAERS Safety Report 4836553-9 (Version None)
Quarter: 2005Q4

REPORT INFORMATION
  Report Type: 
  Country: None (occurrence: None)
  Receive Date: 20051121
  Receipt Date: 20051107
  Transmission Date: 20060501
  Serious: Yes (Life-Threatening, Hospitalization, Other)
  Sender: FDA-Public Use
  Company Number: 2005149515

PATIENT
  Age: 52 Year
  Sex: Male

DRUGS (2)
  1. BEGALIN-P (SULBACTAM, AMPICILLIN) [Suspect]
     Indication: FRACTURE
     Dosage: 1.5 GRAM (1.5 GRAM, 1 IN 1 D), INTRAVENOUS
     Route: 042
     Dates: start: 20051031
  2. ANTIHYPERTENSIVES (ANTIHYPERTENSIVES) [Concomitant]

REACTIONS (5)
  - ANAPHYLACTIC SHOCK [None]
  - ARTERIOSPASM CORONARY [None]
  - CARDIAC ARREST [None]
  - HEART RATE INCREASED [None]
  - MYOCARDIAL INFARCTION [None]
